FAERS Safety Report 15849932 (Version 2)
Quarter: 2019Q1

REPORT INFORMATION
  Report Type: Spontaneous
  Country: TR (occurrence: TR)
  Receive Date: 20190121
  Receipt Date: 20190319
  Transmission Date: 20190417
  Serious: Yes (Other)
  Sender: FDA-Public Use
  Company Number: TR-APOPHARMA USA, INC.-2019AP005272

PATIENT
  Age: 10 Year
  Sex: Female
  Weight: 29 kg

DRUGS (4)
  1. DEFERASIROX. [Concomitant]
     Active Substance: DEFERASIROX
     Indication: THALASSAEMIA
     Dosage: 37.8 MG/KG, QD
     Route: 048
     Dates: start: 20180202
  2. ZINCO                              /00156501/ [Concomitant]
     Indication: THALASSAEMIA
     Dosage: 1 DF, QD
     Route: 048
     Dates: start: 20180202
  3. FOLBIOL [Concomitant]
     Active Substance: FOLIC ACID
     Indication: THALASSAEMIA
     Dosage: 1 DF, QD
     Route: 048
     Dates: start: 20180202
  4. FERRIPROX [Suspect]
     Active Substance: DEFERIPRONE
     Indication: THALASSAEMIA
     Dosage: 33.3 MG/KG, TID
     Route: 048
     Dates: start: 20180629, end: 20190108

REACTIONS (1)
  - Agranulocytosis [Recovered/Resolved]

NARRATIVE: CASE EVENT DATE: 20190108
